FAERS Safety Report 10877901 (Version 1)
Quarter: 2015Q1

REPORT INFORMATION
  Report Type: Spontaneous
  Country: AU (occurrence: None)
  Receive Date: 20150224
  Receipt Date: 20150224
  Transmission Date: 20150721
  Serious: Yes (Other)
  Sender: FDA-Public Use
  Company Number: AU-003248

PATIENT
  Age: 67 Year
  Sex: Male

DRUGS (6)
  1. AMPHOTERICIN B (AMPHOTERICIN B) [Concomitant]
     Active Substance: AMPHOTERICIN B
  2. FLUCONAZOLE (FLUCONAZOLE) [Concomitant]
     Active Substance: FLUCONAZOLE
  3. TRIMETHOPRIM SULFAMETHOXAZOLE (SULFAMETHOXAZOLE, TRIMETHOPRIM) [Concomitant]
  4. MILTEFOSINE [Suspect]
     Active Substance: MILTEFOSINE
     Indication: ENCEPHALITIS PROTOZOAL
  5. AZITHROMYCIN [Concomitant]
     Active Substance: AZITHROMYCIN ANHYDROUS
  6. FLUCYTOSINE (FLUCYTOSINE) [Concomitant]

REACTIONS (9)
  - Hypophagia [None]
  - Gastrointestinal stoma output increased [None]
  - Renal impairment [None]
  - Gastrointestinal disorder [None]
  - General physical health deterioration [None]
  - Off label use [None]
  - Pneumonia [None]
  - Delirium [None]
  - Nosocomial infection [None]
